FAERS Safety Report 19043213 (Version 1)
Quarter: 2021Q1

REPORT INFORMATION
  Report Type: Spontaneous
  Country: US (occurrence: US)
  Receive Date: 20210323
  Receipt Date: 20210323
  Transmission Date: 20210420
  Serious: Yes (Death, Other)
  Sender: FDA-Public Use
  Company Number: US-TEVA-2021-US-1892529

PATIENT
  Sex: Male

DRUGS (12)
  1. OXYCODONE [Suspect]
     Active Substance: OXYCODONE
  2. HYDROMORPHONE [Suspect]
     Active Substance: HYDROMORPHONE
  3. MORPHINE [Suspect]
     Active Substance: MORPHINE
  4. HYDROCODONE AND ACETAMINOPHEN [Suspect]
     Active Substance: ACETAMINOPHEN\HYDROCODONE
  5. DILAUDID [Suspect]
     Active Substance: HYDROMORPHONE HYDROCHLORIDE
     Route: 065
  6. TRAMADOL. [Suspect]
     Active Substance: TRAMADOL
  7. OXYIR [Suspect]
     Active Substance: OXYCODONE HYDROCHLORIDE
     Route: 065
  8. OXYFAST [Suspect]
     Active Substance: OXYCODONE
     Route: 065
  9. MS CONTIN [Suspect]
     Active Substance: MORPHINE SULFATE
     Route: 065
  10. HYDROMORPHONE [Suspect]
     Active Substance: HYDROMORPHONE
  11. OXYCONTIN [Suspect]
     Active Substance: OXYCODONE HYDROCHLORIDE
     Route: 065
  12. OXYCODONE [Suspect]
     Active Substance: OXYCODONE

REACTIONS (6)
  - Personal relationship issue [Unknown]
  - Overdose [Unknown]
  - Death [Fatal]
  - Dependence [Unknown]
  - Economic problem [Unknown]
  - Substance use disorder [Unknown]
